FAERS Safety Report 12660695 (Version 2)
Quarter: 2016Q3

REPORT INFORMATION
  Report Type: Spontaneous
  Country: US (occurrence: US)
  Receive Date: 20160817
  Receipt Date: 20160901
  Transmission Date: 20161109
  Serious: No
  Sender: FDA-Public Use
  Company Number: US-RELYPSA-RLY2016001091

PATIENT
  Age: 77 Year
  Sex: Male

DRUGS (15)
  1. VELTASSA [Suspect]
     Active Substance: PATIROMER
     Indication: HYPERKALAEMIA
     Dosage: 8.4 G, QD
     Route: 048
     Dates: start: 20160513, end: 201605
  2. MIRALAX [Concomitant]
     Active Substance: POLYETHYLENE GLYCOL 3350
  3. AMLODIPINE BESYLATE. [Concomitant]
     Active Substance: AMLODIPINE BESYLATE
  4. MAGNESIUM [Concomitant]
     Active Substance: MAGNESIUM
  5. PRAVASTATIN SODIUM. [Concomitant]
     Active Substance: PRAVASTATIN SODIUM
  6. TEKTURNA HCT [Concomitant]
     Active Substance: ALISKIREN HEMIFUMARATE\HYDROCHLOROTHIAZIDE
  7. METOPROLOL TARTRATE. [Concomitant]
     Active Substance: METOPROLOL TARTRATE
  8. OMEGA 3                            /01333901/ [Concomitant]
     Active Substance: FISH OIL\TOCOPHEROL
  9. OMEPRAZOLE. [Concomitant]
     Active Substance: OMEPRAZOLE
  10. LOSARTAN POTASSIUM. [Concomitant]
     Active Substance: LOSARTAN POTASSIUM
  11. PREDNISONE. [Concomitant]
     Active Substance: PREDNISONE
  12. PROGRAF [Concomitant]
     Active Substance: TACROLIMUS\TACROLIMUS ANHYDROUS
  13. KAYEXALATE [Concomitant]
     Active Substance: SODIUM POLYSTYRENE SULFONATE
  14. CELLCEPT [Concomitant]
     Active Substance: MYCOPHENOLATE MOFETIL\MYCOPHENOLATE MOFETIL HYDROCHLORIDE
  15. FUROSEMIDE. [Concomitant]
     Active Substance: FUROSEMIDE

REACTIONS (3)
  - Abdominal pain upper [Unknown]
  - Headache [Unknown]
  - Vomiting [Unknown]

NARRATIVE: CASE EVENT DATE: 201605
